FAERS Safety Report 5671903-5 (Version None)
Quarter: 2008Q1

REPORT INFORMATION
  Report Type: 
  Country: None (occurrence: None)
  Receive Date: 20080317
  Receipt Date: 20080317
  Transmission Date: 20080703
  Serious: Yes (Life-Threatening, Hospitalization)
  Sender: FDA-Public Use
  Company Number: None

PATIENT
  Sex: Female
  Weight: 110 kg

DRUGS (2)
  1. AZATHIOPRINE [Suspect]
     Indication: LUPUS NEPHRITIS
     Dosage: 150 MG DAILY PO
     Route: 048
     Dates: start: 20071120, end: 20080129
  2. AZATHIOPRINE [Suspect]
     Indication: SYSTEMIC LUPUS ERYTHEMATOSUS
     Dosage: 150 MG DAILY PO
     Route: 048
     Dates: start: 20071120, end: 20080129

REACTIONS (8)
  - BONE MARROW FAILURE [None]
  - CONTUSION [None]
  - DIZZINESS [None]
  - ECCHYMOSIS [None]
  - GINGIVAL BLEEDING [None]
  - PANCYTOPENIA [None]
  - PETECHIAE [None]
  - TACHYCARDIA [None]
